FAERS Safety Report 11401287 (Version 1)
Quarter: 2015Q3

REPORT INFORMATION
  Report Type: Report from Study
  Country: US (occurrence: US)
  Receive Date: 20150820
  Receipt Date: 20150820
  Transmission Date: 20151125
  Serious: Yes (Hospitalization, Other)
  Sender: FDA-Public Use
  Company Number: US-GILEAD-2015-0168371

PATIENT
  Age: 75 Year
  Sex: Female

DRUGS (1)
  1. RANOLAZINE [Suspect]
     Active Substance: RANOLAZINE
     Indication: ANGINA PECTORIS
     Dosage: 500 MG, UNK
     Route: 048

REACTIONS (6)
  - Large intestine polyp [Unknown]
  - Musculoskeletal discomfort [Unknown]
  - Chest pain [Unknown]
  - Chest discomfort [Unknown]
  - Colon cancer stage I [Unknown]
  - Dizziness [Unknown]
